FAERS Safety Report 16740620 (Version 2)
Quarter: 2020Q1

REPORT INFORMATION
  Report Type: Spontaneous
  Country: NL (occurrence: NL)
  Receive Date: 20190826
  Receipt Date: 20200227
  Transmission Date: 20200409
  Serious: Yes (Death, Other)
  Sender: FDA-Public Use
  Company Number: NL-MYLANLABS-2019M1079540

PATIENT
  Age: 78 Year
  Sex: Male

DRUGS (2)
  1. CYKLOKAPRON [Suspect]
     Active Substance: TRANEXAMIC ACID
     Indication: PRODUCT USED FOR UNKNOWN INDICATION
     Dosage: UNK
  2. TRANEXAMIC ACID. [Suspect]
     Active Substance: TRANEXAMIC ACID
     Indication: SPINAL ANAESTHESIA
     Dosage: UNK
     Route: 065

REACTIONS (10)
  - Hypercapnia [Unknown]
  - Wrong product administered [Fatal]
  - Drug abuse [Unknown]
  - Myoclonus [Unknown]
  - Intentional product misuse [Unknown]
  - Pain [Unknown]
  - Arrhythmia [Unknown]
  - Pneumonia [Fatal]
  - Condition aggravated [Unknown]
  - Hypertension [Unknown]
